FAERS Safety Report 9286929 (Version 2)
Quarter: 2013Q2

REPORT INFORMATION
  Report Type: Spontaneous
  Country: US (occurrence: US)
  Receive Date: 20130513
  Receipt Date: 20130522
  Transmission Date: 20140414
  Serious: No
  Sender: FDA-Public Use
  Company Number: US-ASTRAZENECA-2013SE31398

PATIENT
  Age: 78 Year
  Sex: Male
  Weight: 60.8 kg

DRUGS (9)
  1. BRILINTA [Suspect]
     Indication: ACUTE CORONARY SYNDROME
     Route: 048
     Dates: start: 20130429
  2. PLAVIX [Suspect]
     Route: 065
  3. ADVAIR [Concomitant]
     Indication: CHRONIC OBSTRUCTIVE PULMONARY DISEASE
     Dosage: 100/50 BID
     Route: 055
  4. ADVAIR [Concomitant]
     Indication: EMPHYSEMA
     Dosage: 100/50 BID
     Route: 055
  5. XANAX [Concomitant]
     Route: 048
  6. ECOTRIN [Concomitant]
     Route: 048
  7. LASIX [Concomitant]
     Indication: OEDEMA PERIPHERAL
     Route: 048
     Dates: start: 20130418, end: 20130506
  8. ENALIPRIL [Concomitant]
     Route: 048
  9. NITROGLYCERIN [Concomitant]

REACTIONS (7)
  - Tremor [Not Recovered/Not Resolved]
  - Back pain [Not Recovered/Not Resolved]
  - Activities of daily living impaired [Not Recovered/Not Resolved]
  - Somnolence [Not Recovered/Not Resolved]
  - Fall [Not Recovered/Not Resolved]
  - Dyspnoea [Not Recovered/Not Resolved]
  - Dizziness [Not Recovered/Not Resolved]
